FAERS Safety Report 9110031 (Version 2)
Quarter: 2013Q3

REPORT INFORMATION
  Report Type: Spontaneous
  Country: US (occurrence: US)
  Receive Date: 20130222
  Receipt Date: 20130813
  Transmission Date: 20140515
  Serious: Yes (Hospitalization, Congenital Anomaly, Other)
  Sender: FDA-Public Use
  Company Number: US-PFIZER INC-2013065428

PATIENT
  Sex: Female

DRUGS (4)
  1. ZOLOFT [Suspect]
     Indication: DEPRESSION
     Dosage: UNK
     Route: 064
     Dates: start: 2005, end: 2011
  2. PRAMOXINE [Concomitant]
     Dosage: UNK
     Route: 064
  3. ZELNORM [Concomitant]
     Dosage: UNK
     Route: 064
  4. PREVACID [Concomitant]
     Dosage: UNK
     Route: 064

REACTIONS (3)
  - Maternal exposure during pregnancy [Unknown]
  - Gastroschisis [Unknown]
  - Premature baby [Unknown]
